FAERS Safety Report 15007137 (Version 1)
Quarter: 2018Q2

REPORT INFORMATION
  Report Type: Spontaneous
  Country: US (occurrence: US)
  Receive Date: 20180613
  Receipt Date: 20180613
  Transmission Date: 20180711
  Serious: Yes (Other)
  Sender: FDA-Public Use
  Company Number: US-PFIZER INC-2018238826

PATIENT
  Age: 10 Year
  Sex: Female
  Weight: 39 kg

DRUGS (2)
  1. EUCRISA [Suspect]
     Active Substance: CRISABOROLE
     Indication: ECZEMA
     Dosage: APPLY 1 APPLICATION TWICE DAILY TO THE AFFECTED AREAS
     Dates: start: 20180315, end: 20180320
  2. EUCRISA [Suspect]
     Active Substance: CRISABOROLE
     Indication: DERMATITIS ATOPIC
     Dosage: APPLY 1 APPLICATION TWICE DAILY TO THE AFFECTED AREAS
     Dates: start: 20180409, end: 20180411

REACTIONS (2)
  - Application site pain [Recovered/Resolved]
  - Drug hypersensitivity [Recovered/Resolved]

NARRATIVE: CASE EVENT DATE: 20180316
